FAERS Safety Report 17600092 (Version 2)
Quarter: 2020Q2

REPORT INFORMATION
  Report Type: Spontaneous
  Country: US (occurrence: US)
  Receive Date: 20200330
  Receipt Date: 20200427
  Transmission Date: 20200713
  Serious: Yes (Other)
  Sender: FDA-Public Use
  Company Number: US-BAYER-2020-050172

PATIENT
  Age: 83 Year
  Sex: Female

DRUGS (2)
  1. MIRALAX [Suspect]
     Active Substance: POLYETHYLENE GLYCOL 3350
     Indication: DIVERTICULUM
     Dosage: 1 DF, QD
     Route: 048
     Dates: start: 2019
  2. B12 VITAMIN STAR [Concomitant]
     Active Substance: CYANOCOBALAMIN

REACTIONS (11)
  - Head discomfort [Recovered/Resolved]
  - Feeling hot [Recovered/Resolved]
  - Asthenia [Not Recovered/Not Resolved]
  - Off label use [Not Recovered/Not Resolved]
  - Blood pressure increased [Recovered/Resolved]
  - Product use in unapproved indication [Not Recovered/Not Resolved]
  - Loss of consciousness [Recovered/Resolved]
  - Muscle spasms [Recovered/Resolved]
  - Fatigue [Not Recovered/Not Resolved]
  - Abdominal distension [Recovered/Resolved]
  - Flushing [Not Recovered/Not Resolved]
